FAERS Safety Report 16530658 (Version 1)
Quarter: 2019Q3

REPORT INFORMATION
  Report Type: Spontaneous
  Country: US (occurrence: US)
  Receive Date: 20190704
  Receipt Date: 20190704
  Transmission Date: 20191004
  Serious: Yes (Other)
  Sender: FDA-Public Use
  Company Number: US-009507513-1907USA002158

PATIENT
  Sex: Male

DRUGS (1)
  1. JANUMET XR [Suspect]
     Active Substance: METFORMIN HYDROCHLORIDE\SITAGLIPTIN PHOSPHATE
     Dosage: STRENGHT: 50/1000
     Route: 048

REACTIONS (3)
  - Amnesia [Not Recovered/Not Resolved]
  - Dementia [Not Recovered/Not Resolved]
  - Head injury [Not Recovered/Not Resolved]
